FAERS Safety Report 9003606 (Version 1)
Quarter: 2013Q1

REPORT INFORMATION
  Report Type: Spontaneous
  Country: FR (occurrence: FR)
  Receive Date: 20130108
  Receipt Date: 20130108
  Transmission Date: 20140127
  Serious: Yes (Hospitalization)
  Sender: FDA-Public Use
  Company Number: FR-PFIZER INC-2013001894

PATIENT
  Age: 58 Year
  Sex: Female

DRUGS (11)
  1. DEBRIDAT [Suspect]
     Dosage: 1 DF, 4X/DAY
     Route: 042
     Dates: end: 2012
  2. FUROSEMIDE [Suspect]
     Dosage: UNK
     Dates: start: 20120609
  3. ROCEPHINE [Suspect]
     Indication: PERITONITIS
     Dosage: 1 G, 1X/DAY
     Route: 042
     Dates: start: 20120614, end: 20120629
  4. FLAGYL [Suspect]
     Indication: PERITONITIS
     Dosage: 1 DF, 3X/DAY
     Route: 042
     Dates: start: 20120620, end: 20120629
  5. ZOPHREN [Suspect]
     Dosage: 1 DF, AS NEEDED
     Route: 042
     Dates: end: 20120629
  6. CALCIPARIN [Suspect]
     Dosage: 1 DF, 2X/DAY
     Route: 058
  7. ACUPAN [Suspect]
     Dosage: UNK
     Dates: start: 20120608, end: 20120705
  8. ARANESP [Suspect]
  9. PARACETAMOL [Suspect]
     Dosage: 1 G, 4X/DAY
     Route: 042
  10. LEVOTHYROXINE SODIUM [Concomitant]
     Indication: HYPOTHYROIDISM
     Dosage: 125 MG, 1X/DAY
     Route: 042
  11. INEXIUM [Concomitant]
     Dosage: UNK
     Dates: start: 20120630

REACTIONS (1)
  - Rash morbilliform [Recovering/Resolving]
